FAERS Safety Report 21956779 (Version 1)
Quarter: 2023Q1

REPORT INFORMATION
  Report Type: Spontaneous
  Country: None (occurrence: US)
  Receive Date: 20230206
  Receipt Date: 20230206
  Transmission Date: 20230418
  Serious: No
  Sender: FDA-Public Use
  Company Number: US-Mission Pharmacal Company-2137549

PATIENT
  Age: 28 Year
  Sex: Male

DRUGS (3)
  1. THIOLA [Suspect]
     Active Substance: TIOPRONIN
     Indication: Cystinuria
     Route: 048
     Dates: start: 20170527
  2. LISINOPRIL [Concomitant]
     Active Substance: LISINOPRIL
  3. POTASSIUM CITRATE [Concomitant]
     Active Substance: POTASSIUM CITRATE
     Route: 048

REACTIONS (1)
  - Drug ineffective [Unknown]
